FAERS Safety Report 6249762-1 (Version None)
Quarter: 2009Q2

REPORT INFORMATION
  Report Type: 
  Country: None (occurrence: None)
  Receive Date: 20090629
  Receipt Date: 20090622
  Transmission Date: 20091009
  Serious: Yes (Other)
  Sender: FDA-Public Use
  Company Number: US-BAYER-200812226BCC

PATIENT
  Age: 29 Year
  Sex: Female
  Weight: 51 kg

DRUGS (1)
  1. MIDOL [Suspect]
     Indication: MUSCLE SPASMS
     Dates: start: 20080503

REACTIONS (6)
  - ABORTION SPONTANEOUS [None]
  - NO ADVERSE EVENT [None]
  - PLACENTAL DISORDER [None]
  - PREMATURE LABOUR [None]
  - STILLBIRTH [None]
  - UMBILICAL CORD ABNORMALITY [None]
